FAERS Safety Report 25267526 (Version 1)
Quarter: 2025Q2

REPORT INFORMATION
  Report Type: Spontaneous
  Country: US (occurrence: US)
  Receive Date: 20250505
  Receipt Date: 20250505
  Transmission Date: 20250716
  Serious: No
  Sender: TEVA
  Company Number: US-TEVA-VS-3323358

PATIENT
  Age: 25 Year
  Sex: Male

DRUGS (1)
  1. UZEDY [Suspect]
     Active Substance: RISPERIDONE
     Indication: Schizophrenia
     Dosage: STRENGTH: 200/0.56 MG/ML
     Route: 065
     Dates: start: 202504

REACTIONS (7)
  - Adverse drug reaction [Unknown]
  - Anxiety [Unknown]
  - Euphoric mood [Unknown]
  - Tremor [Unknown]
  - Brain fog [Unknown]
  - Palpitations [Unknown]
  - Fatigue [Unknown]
